FAERS Safety Report 7226910-8 (Version None)
Quarter: 2011Q1

REPORT INFORMATION
  Report Type: 
  Country: None (occurrence: None)
  Receive Date: 20110111
  Receipt Date: 20110111
  Transmission Date: 20110831
  Serious: Yes (Other)
  Sender: FDA-Public Use
  Company Number: None

PATIENT
  Sex: Male
  Weight: 60.0562 kg

DRUGS (1)
  1. SERTRALINE HYDROCHLORIDE [Suspect]
     Indication: MAJOR DEPRESSION
     Dosage: 50 MG QD PO
     Route: 048
     Dates: start: 20070215, end: 20070216

REACTIONS (5)
  - CRYING [None]
  - PSYCHOTIC DISORDER [None]
  - ANGER [None]
  - PRODUCT SUBSTITUTION ISSUE [None]
  - IRRITABILITY [None]
